FAERS Safety Report 8560243-2 (Version None)
Quarter: 2012Q3

REPORT INFORMATION
  Report Type: 
  Country: None (occurrence: None)
  Receive Date: 20120802
  Receipt Date: 20120726
  Transmission Date: 20120928
  Serious: Yes (Hospitalization)
  Sender: FDA-Public Use
  Company Number: FR-ROCHE-1084865

PATIENT
  Sex: Female
  Weight: 57 kg

DRUGS (14)
  1. FLUCONAZOLE [Concomitant]
     Dates: start: 20120416
  2. XANAX [Concomitant]
     Dates: start: 20120601
  3. ATARAX [Concomitant]
     Dates: start: 20120701
  4. SPASFON [Concomitant]
     Dates: start: 20120701
  5. MEDROL [Concomitant]
     Dates: start: 20120416
  6. ALODONT [Concomitant]
     Dates: start: 20120416
  7. BICARBONATE [Concomitant]
     Dates: start: 20120416
  8. LOVENOX [Concomitant]
     Dates: start: 20120701
  9. HERCEPTIN [Suspect]
     Indication: BREAST CANCER
     Dosage: LAST DOSE PRIOR TO SAE 18/JUN/2012
     Route: 042
     Dates: start: 20120416
  10. ACETAMINOPHEN [Concomitant]
     Dates: start: 20120416
  11. ACETAMINOPHEN [Concomitant]
     Dates: start: 20120401
  12. DOCETAXEL [Suspect]
     Indication: BREAST CANCER
     Dosage: LAST DOSE PRIOR TO SAE 18/JUN/2012
     Route: 042
     Dates: start: 20120416
  13. TRAMADOL HCL [Concomitant]
     Dates: start: 20120701
  14. PRIMPERAN ELIXIR [Concomitant]
     Dates: start: 20120701

REACTIONS (3)
  - VERTIGO [None]
  - FEBRILE BONE MARROW APLASIA [None]
  - SEPSIS [None]
